FAERS Safety Report 8249200-3 (Version None)
Quarter: 2012Q2

REPORT INFORMATION
  Report Type: 
  Country: None (occurrence: None)
  Receive Date: 20120402
  Receipt Date: 20120326
  Transmission Date: 20120825
  Serious: Yes (Hospitalization)
  Sender: FDA-Public Use
  Company Number: US-BAYER-2011-021171

PATIENT
  Age: 27 Year
  Sex: Female
  Weight: 98 kg

DRUGS (8)
  1. YASMIN [Suspect]
     Indication: PREMENSTRUAL SYNDROME
     Dosage: UNK
     Route: 048
     Dates: start: 20070101, end: 20090101
  2. BUSPAR [Concomitant]
     Dosage: 150 MG, UNK
     Route: 048
     Dates: start: 20090101
  3. OMEPRAZOLE [Concomitant]
     Indication: ULCER
     Dosage: UNK
     Dates: start: 20090101
  4. YAZ [Suspect]
     Indication: PREMENSTRUAL SYNDROME
     Dosage: UNK
     Route: 048
     Dates: start: 20070101, end: 20090101
  5. DROSPIRENONE AND ETHINYL ESTRADIOL [Suspect]
     Indication: PREMENSTRUAL SYNDROME
     Dosage: UNK
     Route: 048
     Dates: start: 20070101, end: 20090101
  6. CYMBALTA [Concomitant]
     Dosage: 60 MG, QD
     Route: 048
  7. TOPAMAX [Concomitant]
     Dosage: 10 MG, BID
     Route: 048
  8. NAPROXEN [Concomitant]
     Indication: ARTHRALGIA
     Dosage: 500 MG, BID
     Route: 048
     Dates: start: 20070101, end: 20090101

REACTIONS (1)
  - PULMONARY EMBOLISM [None]
